FAERS Safety Report 9652836 (Version 2)
Quarter: 2013Q4

REPORT INFORMATION
  Report Type: Spontaneous
  Country: US (occurrence: US)
  Receive Date: 20131029
  Receipt Date: 20131105
  Transmission Date: 20140711
  Serious: No
  Sender: FDA-Public Use
  Company Number: US-009507513-1310USA013195

PATIENT
  Age: 73 Year
  Sex: Female
  Weight: 56.69 kg

DRUGS (4)
  1. OXYTROL FOR WOMEN [Suspect]
     Indication: INCONTINENCE
     Dosage: 1 DF, Q4D
     Route: 062
     Dates: start: 201309
  2. LEXAPRO [Concomitant]
     Indication: DEPRESSION
     Dosage: UNK, UNKNOWN
  3. VESICARE [Concomitant]
     Indication: INCONTINENCE
     Dosage: UNK, UNKNOWN
  4. EVISTA [Concomitant]
     Indication: BREAST CANCER
     Dosage: UNK, UNKNOWN

REACTIONS (1)
  - Drug ineffective [Unknown]
